FAERS Safety Report 7770905-2 (Version None)
Quarter: 2011Q3

REPORT INFORMATION
  Report Type: 
  Country: None (occurrence: None)
  Receive Date: 20110922
  Receipt Date: 20101006
  Transmission Date: 20111222
  Serious: Yes (Hospitalization)
  Sender: FDA-Public Use
  Company Number: US-ASTRAZENECA-2010SE47406

PATIENT
  Age: 16915 Day
  Sex: Male

DRUGS (4)
  1. THIORIDAZINE HCL [Concomitant]
     Dosage: 50 TO 100 MG AT NIGHT
     Route: 048
     Dates: start: 20000718, end: 20010719
  2. RISPERDAL [Concomitant]
     Route: 048
     Dates: start: 20060126
  3. SEROQUEL [Suspect]
     Dosage: 50 TO 100 MG
     Route: 048
     Dates: start: 20001030, end: 20001129
  4. DIVALPROEX SODIUM [Concomitant]
     Indication: SCHIZOAFFECTIVE DISORDER
     Route: 048
     Dates: start: 20000717, end: 20010718

REACTIONS (3)
  - HYPERGLYCAEMIA [None]
  - PANCREATITIS [None]
  - HYPERGLYCAEMIC HYPEROSMOLAR NONKETOTIC SYNDROME [None]
